FAERS Safety Report 7260230 (Version 2)
Quarter: 2013Q1

REPORT INFORMATION
  Report Type: Spontaneous
  Country: TW (occurrence: None)
  Receive Date: 20100114
  Receipt Date: 20130314
  Transmission Date: 20140127
  Serious: Yes (Hospitalization, Disabling, Other)
  Sender: FDA-Public Use
  Company Number: THYM-1001336

PATIENT
  Age: 22 Year
  Sex: Male

DRUGS (7)
  1. THYMOGLOBULIN [Suspect]
     Indication: RENAL TRANSPLANT
     Dosage: 1.25 MG/KG, QD; INTRAVENOUS
     Route: 042
     Dates: start: 2000, end: 2000
  2. THYMOGLOBULIN [Suspect]
     Indication: DRUG RESISTANCE
     Dosage: 1.25 MG/KG, QD; INTRAVENOUS
     Route: 042
     Dates: start: 2000, end: 2000
  3. TACROLIMUS (TACROLIMUS) [Suspect]
     Indication: PROPHYLAXIS AGAINST TRANSPLANT REJECTION
     Dosage: 3 MG, BID; 0.5 MG, QD
  4. CYCLOSPORINE [Concomitant]
  5. MYCOPHENOLATE MOFETIL [Concomitant]
  6. PREDNISOLONE [Concomitant]
  7. METHYLPREDNISOLONE [Concomitant]

REACTIONS (2)
  - Renal failure chronic [None]
  - Post transplant lymphoproliferative disorder [None]
